FAERS Safety Report 22637392 (Version 20)
Quarter: 2024Q1

REPORT INFORMATION
  Report Type: Report from Study
  Country: RU (occurrence: RU)
  Receive Date: 20230626
  Receipt Date: 20240325
  Transmission Date: 20240410
  Serious: Yes (Other)
  Sender: FDA-Public Use
  Company Number: RU-002147023-NVSC2023RU142630

PATIENT
  Age: 0 Year
  Sex: Female
  Weight: 5.5 kg

DRUGS (5)
  1. ZOLGENSMA [Suspect]
     Active Substance: ONASEMNOGENE ABEPARVOVEC-XIOI
     Indication: Spinal muscular atrophy
     Dosage: 30.3 ML, ONCE/SINGLE
     Route: 041
     Dates: start: 20230525, end: 20230525
  2. CHOLECALCIFEROL [Concomitant]
     Active Substance: CHOLECALCIFEROL
     Indication: Product used for unknown indication
     Dosage: 500 IU TO 1000 IU A DAY ONCE PER DAY IN THE MORNING
     Route: 065
  3. SIMETHICONE (DIMETHICONE) [Concomitant]
     Active Substance: DIMETHICONE
     Indication: Product used for unknown indication
     Dosage: 10 DRP (AFTER EACH FEEDING)
     Route: 048
  4. PREDNISOLONE [Concomitant]
     Active Substance: PREDNISOLONE
     Indication: Product used for unknown indication
     Dosage: (1 TABLET + 1/4 TABLET) (ONCE A DAY IN THE MORNING)
     Route: 065
     Dates: start: 20230524
  5. NEXIUM [Concomitant]
     Active Substance: ESOMEPRAZOLE MAGNESIUM
     Indication: Product used for unknown indication
     Dosage: UNK (1/2 SACHET 1 TIME PER DAY AT NIGHT)
     Route: 065

REACTIONS (25)
  - Bradycardia [Recovered/Resolved]
  - Regurgitation [Not Recovered/Not Resolved]
  - Irritability [Unknown]
  - Decreased appetite [Recovered/Resolved]
  - Blood calcium decreased [Recovered/Resolved]
  - Blood creatinine decreased [Unknown]
  - Blood potassium increased [Unknown]
  - Blood uric acid increased [Unknown]
  - Activated partial thromboplastin time shortened [Unknown]
  - Lymphopenia [Unknown]
  - Body temperature increased [Unknown]
  - Blood lactate dehydrogenase increased [Unknown]
  - Aspartate aminotransferase increased [Unknown]
  - Neutrophil percentage increased [Unknown]
  - Mean cell haemoglobin concentration increased [Unknown]
  - Platelet count increased [Unknown]
  - Troponin I increased [Unknown]
  - Mean cell volume increased [Unknown]
  - Immature granulocyte count increased [Unknown]
  - Eosinophil count decreased [Unknown]
  - Monocyte count decreased [Unknown]
  - Red blood cell count decreased [Unknown]
  - Haematocrit decreased [Unknown]
  - Haemoglobin decreased [Unknown]
  - Alanine aminotransferase increased [Unknown]

NARRATIVE: CASE EVENT DATE: 20230528
